FAERS Safety Report 22201206 (Version 1)
Quarter: 2023Q2

REPORT INFORMATION
  Report Type: Spontaneous
  Country: RU (occurrence: None)
  Receive Date: 20230412
  Receipt Date: 20230412
  Transmission Date: 20230722
  Serious: Yes (Other)
  Sender: FDA-Public Use
  Company Number: RU-ROCHE-3325709

PATIENT
  Age: 56 Year
  Sex: Female

DRUGS (4)
  1. ATEZOLIZUMAB [Suspect]
     Active Substance: ATEZOLIZUMAB
     Indication: Non-small cell lung cancer stage IIIB
     Dosage: 31/OCT/2022 - THE PATIENT COMPLETED 1 CYCLE OF ATEZOLIZUMAB?A 21-DAY CYCLE - IN MAINTENANCE REGIMEN
     Route: 041
  2. BEVACIZUMAB [Suspect]
     Active Substance: BEVACIZUMAB
     Indication: Non-small cell lung cancer stage IIIB
     Dosage: A 21-DAY CYCLE - IN MAINTENANCE REGIMEN
     Route: 041
  3. CARBOPLATIN [Suspect]
     Active Substance: CARBOPLATIN
     Indication: Non-small cell lung cancer stage IIIB
     Dosage: AUC 6 ON DAY 1
     Route: 065
  4. PACLITAXEL [Suspect]
     Active Substance: PACLITAXEL
     Indication: Non-small cell lung cancer stage IIIB
     Dosage: 175-200 MG/M2 ON DAY 1
     Route: 065

REACTIONS (6)
  - Neutropenia [Unknown]
  - Radiation fibrosis - lung [Unknown]
  - Congenital diaphragmatic hernia [Unknown]
  - Hiatus hernia [Unknown]
  - Myalgia [Unknown]
  - Nausea [Unknown]

NARRATIVE: CASE EVENT DATE: 20221025
